FAERS Safety Report 14881663 (Version 1)
Quarter: 2018Q2

REPORT INFORMATION
  Report Type: Spontaneous
  Country: US (occurrence: US)
  Receive Date: 20180425
  Receipt Date: 20180425
  Transmission Date: 20180711
  Serious: Yes (Life-Threatening, Other)
  Sender: FDA-Public Use
  Company Number: None

PATIENT
  Age: 32 Year
  Sex: Female
  Weight: 78.75 kg

DRUGS (2)
  1. TOPCARE NITE TIME COLD AND FLU [Suspect]
     Active Substance: ACETAMINOPHEN\DEXTROMETHORPHAN HYDROBROMIDE\DOXYLAMINE SUCCINATE
     Indication: INFLUENZA
     Dosage: ?          QUANTITY:16 CAPSULE(S);?
     Route: 048
     Dates: start: 20180424
  2. TOPCARE NITE TIME COLD AND FLU [Suspect]
     Active Substance: ACETAMINOPHEN\DEXTROMETHORPHAN HYDROBROMIDE\DOXYLAMINE SUCCINATE
     Indication: NASOPHARYNGITIS
     Dosage: ?          QUANTITY:16 CAPSULE(S);?
     Route: 048
     Dates: start: 20180424

REACTIONS (8)
  - Dyspnoea [None]
  - Heart rate increased [None]
  - Vomiting [None]
  - Middle insomnia [None]
  - Pruritus [None]
  - Burning sensation [None]
  - Urticaria [None]
  - Nausea [None]

NARRATIVE: CASE EVENT DATE: 20180425
